FAERS Safety Report 9197898 (Version 1)
Quarter: 2013Q1

REPORT INFORMATION
  Report Type: Report from Study
  Country: US (occurrence: US)
  Receive Date: 20130328
  Receipt Date: 20130328
  Transmission Date: 20140127
  Serious: Yes (Other)
  Sender: FDA-Public Use
  Company Number: US-ABBOTT-13P-163-1066330-00

PATIENT
  Age: 37 Year
  Sex: Female

DRUGS (17)
  1. HUMIRA [Suspect]
     Indication: CROHN^S DISEASE
     Dates: start: 20130222, end: 20130222
  2. HUMIRA [Suspect]
     Dates: start: 20130308, end: 20130308
  3. ENTOCORT EC [Concomitant]
     Indication: CROHN^S DISEASE
  4. XIFAXAN [Concomitant]
     Indication: DIARRHOEA
  5. HYOSCYAMINE [Concomitant]
     Indication: MUSCLE SPASMS
  6. HYOSCYAMINE [Concomitant]
     Indication: ABDOMINAL RIGIDITY
  7. METHITEST [Concomitant]
     Indication: PRODUCT USED FOR UNKNOWN INDICATION
  8. MENEST [Concomitant]
     Indication: PRODUCT USED FOR UNKNOWN INDICATION
  9. OPANA [Concomitant]
     Indication: PRODUCT USED FOR UNKNOWN INDICATION
  10. VICODIN [Concomitant]
     Indication: PRODUCT USED FOR UNKNOWN INDICATION
  11. BENTYL [Concomitant]
     Indication: MUSCLE SPASMS
  12. VITAMIN B12 [Concomitant]
     Indication: VITAMIN SUPPLEMENTATION
  13. SINGULAIR [Concomitant]
     Indication: ASTHMA
  14. PRILOSEC [Concomitant]
     Indication: GASTROOESOPHAGEAL REFLUX DISEASE
  15. CYMBALTA [Concomitant]
     Indication: ANXIETY
  16. ADVAIR HFA [Concomitant]
     Indication: ASTHMA
  17. VITAMIN D NOS [Concomitant]
     Indication: VITAMIN SUPPLEMENTATION

REACTIONS (4)
  - Convulsion [Recovered/Resolved]
  - Vomiting [Recovered/Resolved]
  - Vomiting [Recovered/Resolved]
  - Injection site urticaria [Unknown]
